FAERS Safety Report 18733495 (Version 3)
Quarter: 2021Q2

REPORT INFORMATION
  Report Type: Report from Study
  Country: US (occurrence: US)
  Receive Date: 20210112
  Receipt Date: 20210525
  Transmission Date: 20210717
  Serious: Yes (Hospitalization)
  Sender: FDA-Public Use
  Company Number: US-SEATTLE GENETICS-2021SGN00065

PATIENT
  Sex: Female

DRUGS (2)
  1. TUCATINIB [Suspect]
     Active Substance: TUCATINIB
     Indication: BREAST CANCER FEMALE
     Dosage: UNK
  2. XELODA [Concomitant]
     Active Substance: CAPECITABINE
     Dosage: UNK

REACTIONS (7)
  - Hospitalisation [Unknown]
  - Diarrhoea [Unknown]
  - Blood potassium decreased [Unknown]
  - Gallbladder disorder [Unknown]
  - Blood magnesium decreased [Unknown]
  - Fall [Unknown]
  - Cardiac disorder [Unknown]
